FAERS Safety Report 6664771-6 (Version None)
Quarter: 2010Q1

REPORT INFORMATION
  Report Type: 
  Country: None (occurrence: None)
  Receive Date: 20100330
  Receipt Date: 20100315
  Transmission Date: 20100710
  Serious: Yes (Life-Threatening, Hospitalization, Other)
  Sender: FDA-Public Use
  Company Number: AUR-APU-2009-00337

PATIENT
  Age: 38 Year
  Sex: Male

DRUGS (1)
  1. AMOXICILLIN [Suspect]
     Indication: NASOPHARYNGITIS

REACTIONS (6)
  - BLOOD CULTURE POSITIVE [None]
  - BONE MARROW FAILURE [None]
  - COLITIS ISCHAEMIC [None]
  - ESCHERICHIA INFECTION [None]
  - PANCYTOPENIA [None]
  - SEPTIC SHOCK [None]
